FAERS Safety Report 12697159 (Version 1)
Quarter: 2016Q3

REPORT INFORMATION
  Report Type: Spontaneous
  Country: US (occurrence: None)
  Receive Date: 20160829
  Receipt Date: 20160829
  Transmission Date: 20161109
  Serious: Yes (Life-Threatening, Other)
  Sender: FDA-Public Use
  Company Number: None

PATIENT
  Age: 48 Year
  Sex: Female
  Weight: 120.2 kg

DRUGS (3)
  1. MUCUS RELIEF [Suspect]
     Active Substance: GUAIFENESIN
     Indication: NASOPHARYNGITIS
     Route: 048
     Dates: start: 20160821, end: 20160821
  2. EFFEXOR [Concomitant]
     Active Substance: VENLAFAXINE HYDROCHLORIDE
  3. VERAPAMIL [Concomitant]
     Active Substance: VERAPAMIL HYDROCHLORIDE

REACTIONS (4)
  - Depersonalisation/derealisation disorder [None]
  - Suicidal ideation [None]
  - Headache [None]
  - Hypoaesthesia [None]

NARRATIVE: CASE EVENT DATE: 20160821
